FAERS Safety Report 5245901-X (Version None)
Quarter: 2007Q1

REPORT INFORMATION
  Report Type: 
  Country: None (occurrence: None)
  Receive Date: 20070216
  Receipt Date: 20070205
  Transmission Date: 20070707
  Serious: Yes (Other)
  Sender: FDA-Public Use
  Company Number: 236064

PATIENT
  Age: 48 Year
  Sex: Male

DRUGS (1)
  1. RAPTIVA [Suspect]
     Indication: PSORIASIS
     Dosage: 0.1 MG/KG, 1/WEEK, SUBCUTANEOUS
     Route: 058
     Dates: start: 20070105

REACTIONS (2)
  - INFLUENZA [None]
  - SYNCOPE VASOVAGAL [None]
